APPROVED DRUG PRODUCT: LANSOPRAZOLE
Active Ingredient: LANSOPRAZOLE
Strength: 15MG
Dosage Form/Route: CAPSULE, DELAYED REL PELLETS;ORAL
Application: A202176 | Product #001 | TE Code: AB
Applicant: APOTEX INC
Approved: Sep 14, 2012 | RLD: No | RS: No | Type: RX